FAERS Safety Report 10093246 (Version 1)
Quarter: 2014Q2

REPORT INFORMATION
  Report Type: Spontaneous
  Country: US (occurrence: US)
  Receive Date: 20140421
  Receipt Date: 20140421
  Transmission Date: 20141212
  Serious: No
  Sender: FDA-Public Use
  Company Number: US-SA-2013SA118853

PATIENT
  Sex: Female

DRUGS (2)
  1. ALLEGRA [Suspect]
     Indication: RASH
     Dosage: THERAPY STARTED ABOUT TWO WEEKS AGO
     Route: 048
  2. TENORMIN [Concomitant]
     Route: 065

REACTIONS (1)
  - Heart rate irregular [Unknown]
